FAERS Safety Report 7425286-0 (Version None)
Quarter: 2011Q2

REPORT INFORMATION
  Report Type: 
  Country: None (occurrence: None)
  Receive Date: 20110414
  Receipt Date: 20110329
  Transmission Date: 20111010
  Serious: Yes (Other)
  Sender: FDA-Public Use
  Company Number: 029794

PATIENT
  Sex: Female

DRUGS (6)
  1. LASIX /00032601/ [Concomitant]
  2. ARTIST [Concomitant]
  3. WARFARIN SODIUM [Concomitant]
  4. ALDACTONE [Concomitant]
  5. TAKEPRON [Concomitant]
  6. KEPPRA [Suspect]
     Indication: EPILEPSY
     Dosage: (500 MG BID ORAL)

REACTIONS (11)
  - PYREXIA [None]
  - SPLENORENAL SHUNT [None]
  - HEPATIC FAILURE [None]
  - PLEURAL EFFUSION [None]
  - RENAL IMPAIRMENT [None]
  - HYPERAMMONAEMIA [None]
  - CARDIAC FAILURE [None]
  - CARDIOMEGALY [None]
  - PNEUMONIA [None]
  - ALTERED STATE OF CONSCIOUSNESS [None]
  - PANCREATITIS CHRONIC [None]
